FAERS Safety Report 6093587-7 (Version None)
Quarter: 2009Q1

REPORT INFORMATION
  Report Type: 
  Country: None (occurrence: None)
  Receive Date: 20090224
  Receipt Date: 20090212
  Transmission Date: 20090719
  Serious: Yes (Hospitalization, Other)
  Sender: FDA-Public Use
  Company Number: ENT-2008-0201

PATIENT
  Age: 76 Year
  Sex: Female

DRUGS (13)
  1. COMTAN [Suspect]
     Indication: DRUG EFFECT DECREASED
     Dosage: 100 MG (100 MG, 1 IN 1 D), ORAL
     Route: 048
     Dates: start: 20081021, end: 20081111
  2. PRAMIPEXOLE DIHYDROCHLORIDE [Concomitant]
  3. CARBIDOPA AND LEVODOPA [Concomitant]
  4. DOMIN (TALIPEXOLE) [Concomitant]
  5. DOPS [Concomitant]
  6. MAGLAX [Concomitant]
  7. BERIZYM [Concomitant]
  8. SELBEX [Concomitant]
  9. RHYTHMY [Concomitant]
  10. LAXOBERON [Concomitant]
  11. GASMOTIN (MOSAPRIDE CITRATE) [Concomitant]
  12. GASCON [Concomitant]
  13. E C DOPAL [Concomitant]

REACTIONS (11)
  - ALANINE AMINOTRANSFERASE INCREASED [None]
  - ALTERED STATE OF CONSCIOUSNESS [None]
  - ASPARTATE AMINOTRANSFERASE INCREASED [None]
  - BLOOD CREATINE PHOSPHOKINASE INCREASED [None]
  - BLOOD UREA INCREASED [None]
  - CONTUSION [None]
  - DRUG INEFFECTIVE [None]
  - FALL [None]
  - HALLUCINATION [None]
  - HUMERUS FRACTURE [None]
  - LOSS OF CONSCIOUSNESS [None]
